FAERS Safety Report 20059713 (Version 1)
Quarter: 2021Q4

REPORT INFORMATION
  Report Type: Spontaneous
  Country: US (occurrence: None)
  Receive Date: 20211111
  Receipt Date: 20211111
  Transmission Date: 20220303
  Serious: No
  Sender: FDA-Public Use
  Company Number: 2021A802143

PATIENT
  Sex: Female
  Weight: 56.2 kg

DRUGS (1)
  1. SYMBICORT [Suspect]
     Active Substance: BUDESONIDE\FORMOTEROL FUMARATE DIHYDRATE
     Dosage: 2 PUFFS
     Route: 055

REACTIONS (4)
  - Depressed level of consciousness [Unknown]
  - Frustration tolerance decreased [Unknown]
  - Joint injury [Unknown]
  - Product dose omission issue [Not Recovered/Not Resolved]
